FAERS Safety Report 17997358 (Version 1)
Quarter: 2020Q3

REPORT INFORMATION
  Report Type: Spontaneous
  Country: NZ (occurrence: NZ)
  Receive Date: 20200708
  Receipt Date: 20200708
  Transmission Date: 20201103
  Serious: Yes (Other)
  Sender: FDA-Public Use
  Company Number: NZ-ELI_LILLY_AND_COMPANY-NZ202006011875

PATIENT
  Age: 56 Year
  Sex: Male

DRUGS (4)
  1. QUETIAPINE. [Concomitant]
     Active Substance: QUETIAPINE
     Indication: PRODUCT USED FOR UNKNOWN INDICATION
     Dosage: 400 MG, DAILY (AT NIGHT)
     Route: 048
  2. ZYPREXA [Suspect]
     Active Substance: OLANZAPINE
     Indication: PRODUCT USED FOR UNKNOWN INDICATION
     Dosage: 210 MG, MONTHLY (1/M, EVERY FOUR WEEKS)
     Route: 065
  3. ZYPREXA [Suspect]
     Active Substance: OLANZAPINE
     Indication: PRODUCT USED FOR UNKNOWN INDICATION
     Dosage: 210 MG, MONTHLY (1/M, EVERY FOUR WEEKS)
     Route: 065
  4. ZYPREXA [Suspect]
     Active Substance: OLANZAPINE
     Indication: PRODUCT USED FOR UNKNOWN INDICATION
     Dosage: 210 MG, MONTHLY (1/M, EVERY FOUR WEEKS)
     Route: 065

REACTIONS (2)
  - Inappropriate schedule of product administration [Unknown]
  - Facial paralysis [Recovered/Resolved]

NARRATIVE: CASE EVENT DATE: 20200612
